FAERS Safety Report 5121449-8 (Version None)
Quarter: 2006Q4

REPORT INFORMATION
  Report Type: 
  Country: None (occurrence: None)
  Receive Date: 20061003
  Receipt Date: 20060920
  Transmission Date: 20070319
  Serious: Yes (Hospitalization)
  Sender: FDA-Public Use
  Company Number: 2006113782

PATIENT
  Age: 33 Year
  Sex: Male
  Weight: 50 kg

DRUGS (2)
  1. SUTENT [Suspect]
     Indication: GASTROINTESTINAL STROMAL TUMOUR
     Dosage: 50 MG (50 MG, 1 IN 1 D), ORAL; SEE IMAGE
     Route: 048
     Dates: start: 20051123
  2. SUTENT [Suspect]
     Indication: GASTROINTESTINAL STROMAL TUMOUR
     Dosage: 50 MG (50 MG, 1 IN 1 D), ORAL; SEE IMAGE
     Route: 048
     Dates: start: 20060803

REACTIONS (4)
  - GASTROINTESTINAL DISORDER [None]
  - POST PROCEDURAL COMPLICATION [None]
  - PURULENT DISCHARGE [None]
  - SURGERY [None]
